FAERS Safety Report 8359236-X (Version None)
Quarter: 2012Q2

REPORT INFORMATION
  Report Type: 
  Country: None (occurrence: None)
  Receive Date: 20120511
  Receipt Date: 20120501
  Transmission Date: 20120825
  Serious: Yes (Hospitalization, Other)
  Sender: FDA-Public Use
  Company Number: 2012P1017318

PATIENT
  Age: 70 Year
  Sex: Male

DRUGS (7)
  1. CEPHALEXIN [Suspect]
     Indication: SKIN LESION
     Dosage: 500 MG;TID
     Dates: start: 20120101, end: 20120101
  2. PRINIVIL [Concomitant]
  3. VITAMIN B COMPLEX CAP [Concomitant]
  4. ASPIRIN [Concomitant]
  5. CO Q 10 [Concomitant]
  6. TOPROL-XL [Concomitant]
  7. FISH OIL [Concomitant]

REACTIONS (4)
  - ABDOMINAL DISTENSION [None]
  - ABDOMINAL PAIN UPPER [None]
  - ASTHENIA [None]
  - CONSTIPATION [None]
